FAERS Safety Report 24574572 (Version 2)
Quarter: 2024Q4

REPORT INFORMATION
  Report Type: Report from Study
  Country: CN (occurrence: CN)
  Receive Date: 20241104
  Receipt Date: 20241112
  Transmission Date: 20250115
  Serious: Yes (Hospitalization)
  Sender: NOVARTIS
  Company Number: CN-002147023-NVSC2024CN208383

PATIENT
  Age: 27 Year
  Sex: Male
  Weight: 87 kg

DRUGS (4)
  1. COSENTYX [Suspect]
     Active Substance: SECUKINUMAB
     Indication: Psoriasis
     Dosage: 300 MG (AS PER PROTOCOL DEFINED FREQUENCY)
     Route: 058
     Dates: start: 20221125
  2. COSENTYX [Suspect]
     Active Substance: SECUKINUMAB
     Dosage: UNK
     Route: 065
     Dates: start: 20221209
  3. EBASTINE [Concomitant]
     Active Substance: EBASTINE
     Indication: Product used for unknown indication
     Dosage: 1 DOSAGE FORM, QD
     Route: 065
     Dates: start: 20221202, end: 20221212
  4. CETIRIZINE HYDROCHLORIDE [Concomitant]
     Active Substance: CETIRIZINE HYDROCHLORIDE
     Indication: Product used for unknown indication
     Dosage: 1 DOSAGE FORM, QD
     Route: 065
     Dates: start: 20221202, end: 20221226

REACTIONS (5)
  - Hepatic function abnormal [Recovered/Resolved]
  - Hepatic failure [Unknown]
  - Lipidosis [Unknown]
  - Gallbladder cholesterolosis [Unknown]
  - Renal cyst [Unknown]

NARRATIVE: CASE EVENT DATE: 20221209
